FAERS Safety Report 6656623-2 (Version None)
Quarter: 2010Q1

REPORT INFORMATION
  Report Type: 
  Country: None (occurrence: None)
  Receive Date: 20100329
  Receipt Date: 20091005
  Transmission Date: 20100710
  Serious: Yes (Hospitalization)
  Sender: FDA-Public Use
  Company Number: US-GENENTECH-282635

PATIENT
  Sex: Female
  Weight: 88.435 kg

DRUGS (28)
  1. XOLAIR [Suspect]
     Indication: ASTHMA
     Dosage: 222 A?G, SINGLE
     Route: 058
     Dates: start: 20090501, end: 20090501
  2. LORATADINE [Concomitant]
     Indication: HYPERSENSITIVITY
     Dosage: UNK
  3. ALBUTEROL [Concomitant]
     Indication: DYSPNOEA
     Dosage: UNK
     Dates: start: 19980101
  4. ALBUTEROL [Concomitant]
     Indication: ASTHMA
  5. VERAPAMIL [Concomitant]
     Indication: HYPERTENSION
     Dosage: UNK
  6. TYLENOL-500 [Concomitant]
     Indication: PAIN
     Dosage: UNK
  7. TRIAMTERENE [Concomitant]
     Indication: HYPERTENSION
     Dosage: UNK
  8. SINGULAIR [Concomitant]
     Indication: ASTHMA
     Dosage: 10 MG, QD
     Route: 048
     Dates: start: 19950101
  9. OMEPRAZOLE [Concomitant]
     Indication: GASTROOESOPHAGEAL REFLUX DISEASE
     Dosage: 20 MG, BID
     Route: 048
  10. SYMBICORT [Concomitant]
     Indication: ASTHMA
     Dosage: 2 PUFF, BID
     Route: 055
  11. METFORMIN HYDROCHLORIDE [Concomitant]
     Indication: DIABETES MELLITUS
     Dosage: UNK
     Route: 048
  12. AZITHROMYCIN [Concomitant]
     Indication: DRUG USE FOR UNKNOWN INDICATION
     Dosage: UNK
     Route: 048
     Dates: start: 20090101
  13. AMLODIPINE [Concomitant]
     Indication: HYPERTENSION
     Dosage: 10 MG, QD
     Route: 048
  14. HYZAAR [Concomitant]
     Indication: HYPERTENSION
     Dosage: UNK
  15. DOXYCYCLINE [Concomitant]
     Indication: VIRAL INFECTION
     Dosage: 100 MG, BID
     Route: 048
     Dates: start: 20091028, end: 20091108
  16. LITHIUM [Concomitant]
     Indication: BIPOLAR DISORDER
     Dosage: 300 MG, BID
     Route: 048
     Dates: start: 20091029
  17. ZANTAC [Concomitant]
     Indication: GASTROOESOPHAGEAL REFLUX DISEASE
     Dosage: 150 UNK, UNK
     Route: 048
     Dates: start: 20091008
  18. CYCLOBENZAPRINE [Concomitant]
     Indication: MUSCLE SPASMS
     Dosage: UNK
     Route: 048
     Dates: start: 20091104, end: 20091104
  19. OXYCODONE [Concomitant]
     Indication: MIGRAINE
     Dosage: UNK
     Dates: start: 20080101
  20. OXYCODONE [Concomitant]
     Indication: BACK PAIN
  21. DIAZEPAM [Concomitant]
     Indication: ANXIETY
     Dosage: UNK
     Dates: start: 20091008
  22. PROMETHAZINE [Concomitant]
     Indication: NAUSEA
     Dosage: UNK
     Dates: start: 20090810
  23. ONDANSETRON [Concomitant]
     Indication: NAUSEA
     Dosage: UNK
     Dates: start: 20090828, end: 20091028
  24. THEOPHYLLINE [Concomitant]
     Indication: ASTHMA
     Dosage: UNK
     Dates: start: 20091103
  25. PREDNISONE TAB [Concomitant]
     Indication: ASTHMA
     Dosage: UNK
     Dates: start: 19930101
  26. ACIPHEX [Concomitant]
     Indication: GASTROOESOPHAGEAL REFLUX DISEASE
     Dosage: UNK
     Dates: start: 20090101
  27. CLONAZEPAM [Concomitant]
     Indication: ANXIETY
     Dosage: UNK
     Dates: start: 20091007
  28. SYMBICORT [Concomitant]
     Dosage: UNK
     Dates: start: 20070101

REACTIONS (1)
  - ANGIOEDEMA [None]
